FAERS Safety Report 12783568 (Version 1)
Quarter: 2016Q3

REPORT INFORMATION
  Report Type: Report from Study
  Country: US (occurrence: US)
  Receive Date: 20160927
  Receipt Date: 20160927
  Transmission Date: 20161109
  Serious: Yes (Other)
  Sender: FDA-Public Use
  Company Number: US-ROCHE-1834202

PATIENT
  Age: 69 Year
  Sex: Female
  Weight: 85.8 kg

DRUGS (24)
  1. BEVACIZUMAB [Suspect]
     Active Substance: BEVACIZUMAB
     Dosage: COURSE ID 5
     Route: 042
     Dates: start: 20120227
  2. BEVACIZUMAB [Suspect]
     Active Substance: BEVACIZUMAB
     Dosage: COURSE ID 6
     Route: 042
     Dates: start: 20120319
  3. BEVACIZUMAB [Suspect]
     Active Substance: BEVACIZUMAB
     Dosage: COURSE ID 11
     Route: 042
     Dates: start: 20120702
  4. BEVACIZUMAB [Suspect]
     Active Substance: BEVACIZUMAB
     Dosage: COURSE ID 15
     Route: 042
     Dates: start: 20121001
  5. BEVACIZUMAB [Suspect]
     Active Substance: BEVACIZUMAB
     Indication: PAPILLARY SEROUS ENDOMETRIAL CARCINOMA
     Dosage: COURSE ID 1?OVER 30-90 MINUTES ON DAY 1 ?LAST TREATMENT DATE: 03/DEC/2012
     Route: 042
     Dates: start: 20111207
  6. BEVACIZUMAB [Suspect]
     Active Substance: BEVACIZUMAB
     Dosage: COURSE ID 13
     Route: 042
     Dates: start: 20120820
  7. CARBOPLATIN. [Suspect]
     Active Substance: CARBOPLATIN
     Indication: PAPILLARY SEROUS ENDOMETRIAL CARCINOMA
     Dosage: OVER 30 MINUTES
     Route: 042
  8. BEVACIZUMAB [Suspect]
     Active Substance: BEVACIZUMAB
     Dosage: COURSE ID 3
     Route: 042
     Dates: start: 20120116
  9. BEVACIZUMAB [Suspect]
     Active Substance: BEVACIZUMAB
     Dosage: COURSE ID 9
     Route: 042
     Dates: start: 20120521
  10. BEVACIZUMAB [Suspect]
     Active Substance: BEVACIZUMAB
     Dosage: COURSE ID 10
     Route: 042
     Dates: start: 20120611
  11. BEVACIZUMAB [Suspect]
     Active Substance: BEVACIZUMAB
     Dosage: COURSE ID 14
     Route: 042
     Dates: start: 20120910
  12. BEVACIZUMAB [Suspect]
     Active Substance: BEVACIZUMAB
     Dosage: COURSE ID 8
     Route: 042
     Dates: start: 20120430
  13. BEVACIZUMAB [Suspect]
     Active Substance: BEVACIZUMAB
     Dosage: COURSE ID 12
     Route: 042
     Dates: start: 20120730
  14. IXABEPILONE [Suspect]
     Active Substance: IXABEPILONE
     Indication: PAPILLARY SEROUS ENDOMETRIAL CARCINOMA
     Dosage: COURSE ID 1?OVER 1 HOUR
     Route: 042
     Dates: start: 20111207
  15. BEVACIZUMAB [Suspect]
     Active Substance: BEVACIZUMAB
     Dosage: COURSE ID 4
     Route: 042
     Dates: start: 20120206
  16. BEVACIZUMAB [Suspect]
     Active Substance: BEVACIZUMAB
     Dosage: COURSE ID 16
     Route: 042
     Dates: start: 20121022
  17. IXABEPILONE [Suspect]
     Active Substance: IXABEPILONE
     Dosage: COURSE ID 2
     Route: 042
     Dates: start: 20111227
  18. BEVACIZUMAB [Suspect]
     Active Substance: BEVACIZUMAB
     Dosage: COURSE ID 2
     Route: 042
     Dates: start: 20111227
  19. BEVACIZUMAB [Suspect]
     Active Substance: BEVACIZUMAB
     Dosage: COURSE ID 7
     Route: 042
     Dates: start: 20120409
  20. BEVACIZUMAB [Suspect]
     Active Substance: BEVACIZUMAB
     Dosage: COURSE ID 17
     Route: 042
     Dates: start: 20121112
  21. IXABEPILONE [Suspect]
     Active Substance: IXABEPILONE
     Dosage: COURSE ID 3
     Route: 042
     Dates: start: 20120116
  22. IXABEPILONE [Suspect]
     Active Substance: IXABEPILONE
     Dosage: COURSE ID 4
     Route: 042
     Dates: start: 20120206
  23. IXABEPILONE [Suspect]
     Active Substance: IXABEPILONE
     Dosage: COURSE ID 5
     Route: 042
     Dates: start: 20120227
  24. IXABEPILONE [Suspect]
     Active Substance: IXABEPILONE
     Dosage: COURSE ID 6
     Route: 042
     Dates: start: 20120319

REACTIONS (2)
  - Hypertension [Unknown]
  - Anaemia [Unknown]
